FAERS Safety Report 18606713 (Version 1)
Quarter: 2020Q4

REPORT INFORMATION
  Report Type: Spontaneous
  Country: US (occurrence: US)
  Receive Date: 20201211
  Receipt Date: 20201211
  Transmission Date: 20210114
  Serious: No
  Sender: FDA-Public Use
  Company Number: US-ASTRAZENECA-2020SF51884

PATIENT
  Sex: Female

DRUGS (3)
  1. GENERIC SYMBICORT [Suspect]
     Active Substance: BUDESONIDE\FORMOTEROL FUMARATE DIHYDRATE
     Dosage: UNKNOWN UNKNOWN
     Route: 055
  2. BUDESONIDE AND FORMOTEROL [Suspect]
     Active Substance: BUDESONIDE\FORMOTEROL
     Indication: ASTHMA
     Dosage: AS REQUIRED AS REQUIRED
     Route: 055
  3. BUDESONIDE AND FORMOTEROL [Suspect]
     Active Substance: BUDESONIDE\FORMOTEROL
     Indication: MULTIPLE ALLERGIES
     Dosage: AS REQUIRED AS REQUIRED
     Route: 055

REACTIONS (5)
  - Asthma [Unknown]
  - Hypersensitivity [Unknown]
  - Device dispensing error [Unknown]
  - Expired device used [Unknown]
  - Intentional device misuse [Unknown]
